FAERS Safety Report 5449499-2 (Version None)
Quarter: 2007Q3

REPORT INFORMATION
  Report Type: 
  Country: None (occurrence: None)
  Receive Date: 20070907
  Receipt Date: 20070823
  Transmission Date: 20080115
  Serious: Yes (Death, Other)
  Sender: FDA-Public Use
  Company Number: THQ2007A00795

PATIENT
  Sex: Male

DRUGS (3)
  1. LUCRIN TRI-DEPOT INJECTION (LEUPROLIDE ACETATE) (INJECTION) [Suspect]
     Indication: PROSTATE CANCER
     Dosage: 11.25 MG (11.25 MG, 1 IN 3 M) ONGOING UNTIL DEATH
     Dates: start: 20051001
  2. CYPROTERONE ACETATE [Concomitant]
  3. BICALUTAMIDE [Concomitant]

REACTIONS (3)
  - MALIGNANT NEOPLASM PROGRESSION [None]
  - METASTASES TO BONE [None]
  - PROSTATE CANCER [None]
